FAERS Safety Report 6222947-6 (Version None)
Quarter: 2009Q2

REPORT INFORMATION
  Report Type: 
  Country: None (occurrence: None)
  Receive Date: 20090611
  Receipt Date: 20090608
  Transmission Date: 20091009
  Serious: Yes (Other)
  Sender: FDA-Public Use
  Company Number: US-AMGEN-US347699

PATIENT
  Sex: Male
  Weight: 88 kg

DRUGS (8)
  1. NPLATE [Suspect]
     Indication: IDIOPATHIC THROMBOCYTOPENIC PURPURA
     Route: 058
     Dates: start: 20081015, end: 20081105
  2. CORTICOSTEROIDS [Concomitant]
     Route: 065
     Dates: start: 20040501
  3. PREDNISONE [Concomitant]
     Route: 048
     Dates: start: 20040506
  4. ATENOLOL [Concomitant]
     Route: 048
     Dates: start: 20040101
  5. ASTELIN [Concomitant]
     Route: 055
     Dates: start: 20040101
  6. NASALIDE [Concomitant]
     Route: 055
     Dates: start: 20040101
  7. PRILOSEC [Concomitant]
     Route: 048
     Dates: start: 20060101
  8. LISINOPRIL [Concomitant]
     Route: 048
     Dates: start: 20060101

REACTIONS (3)
  - BACK PAIN [None]
  - MUSCLE SPASMS [None]
  - THROMBOCYTOPENIA [None]
